FAERS Safety Report 24709359 (Version 1)
Quarter: 2024Q4

REPORT INFORMATION
  Report Type: Spontaneous
  Country: CN (occurrence: CN)
  Receive Date: 20241208
  Receipt Date: 20241208
  Transmission Date: 20250114
  Serious: Yes (Disabling, Other)
  Sender: NOVO NORDISK
  Company Number: CN-NOVOPROD-1326279

PATIENT
  Age: 71 Year
  Sex: Male
  Weight: 60 kg

DRUGS (2)
  1. INSULIN ASPART [Suspect]
     Active Substance: INSULIN ASPART
     Indication: Type 2 diabetes mellitus
     Dosage: 15 IU, BID(BEFORE BREAKFAST AND DINNER RESPECTIVELY)
     Dates: start: 2008
  2. METFORMIN [Concomitant]
     Active Substance: METFORMIN HYDROCHLORIDE
     Indication: Product used for unknown indication
     Dosage: 1 TABLET PER TIME, BID

REACTIONS (4)
  - Surgery [Unknown]
  - Walking disability [Not Recovered/Not Resolved]
  - Hepatic cancer [Unknown]
  - Hypoproteinaemia [Not Recovered/Not Resolved]
